FAERS Safety Report 4437190-0 (Version None)
Quarter: 2004Q3

REPORT INFORMATION
  Report Type: 
  Country: None (occurrence: None)
  Receive Date: 20040827
  Receipt Date: 20040818
  Transmission Date: 20050211
  Serious: Yes (Death)
  Sender: FDA-Public Use
  Company Number: 2004UW17488

PATIENT
  Age: 83 Year
  Sex: Male

DRUGS (3)
  1. IRESSA [Suspect]
     Indication: LUNG NEOPLASM MALIGNANT
     Dosage: 250 MG PO
     Route: 048
     Dates: start: 20040601
  2. OXYGEN [Concomitant]
  3. MORPHINE [Concomitant]

REACTIONS (3)
  - ABDOMINAL PAIN UPPER [None]
  - COLLAPSE OF LUNG [None]
  - DIARRHOEA [None]
